FAERS Safety Report 7842854-2 (Version None)
Quarter: 2011Q4

REPORT INFORMATION
  Report Type: 
  Country: None (occurrence: None)
  Receive Date: 20111025
  Receipt Date: 20111012
  Transmission Date: 20120403
  Serious: Yes (Hospitalization)
  Sender: FDA-Public Use
  Company Number: US-BAYER-2011-081780

PATIENT
  Sex: Female
  Weight: 126.98 kg

DRUGS (15)
  1. YAZ [Suspect]
     Indication: ACNE
     Dosage: UNK
     Dates: start: 20041201, end: 20090801
  2. YAZ [Suspect]
     Indication: PREMENSTRUAL SYNDROME
  3. YASMIN [Suspect]
     Indication: ACNE
     Dosage: UNK
     Dates: start: 20041201
  4. VICODIN [Concomitant]
  5. YASMIN [Suspect]
     Indication: PREMENSTRUAL SYNDROME
  6. YASMIN [Suspect]
  7. CLONAZEPAM [Concomitant]
  8. DROSPIRENONE AND ETHINYL ESTRADIOL [Suspect]
     Indication: ACNE
     Dosage: UNK
     Dates: start: 20041201, end: 20090801
  9. DROSPIRENONE AND ETHINYL ESTRADIOL [Suspect]
     Indication: PREMENSTRUAL SYNDROME
  10. ZYRTEC [Concomitant]
  11. PRELIEF [Concomitant]
  12. YAZ [Suspect]
  13. DROSPIRENONE AND ETHINYL ESTRADIOL [Suspect]
  14. PHENAZOPYRIDINE HCL TAB [Concomitant]
  15. PREVACID [Concomitant]

REACTIONS (5)
  - CHOLELITHIASIS [None]
  - PAIN [None]
  - CHOLECYSTITIS [None]
  - ABDOMINAL DISCOMFORT [None]
  - INJURY [None]
